FAERS Safety Report 10179153 (Version 1)
Quarter: 2014Q2

REPORT INFORMATION
  Report Type: Spontaneous
  Country: US (occurrence: None)
  Receive Date: 20140516
  Receipt Date: 20140516
  Transmission Date: 20141212
  Serious: Yes (Other)
  Sender: FDA-Public Use
  Company Number: None

PATIENT
  Age: 73 Year
  Sex: Female
  Weight: 66.23 kg

DRUGS (8)
  1. TERBINAFINE 250 MG LAMISIL [Suspect]
     Indication: FUNGAL INFECTION
     Dosage: 250MG 80 PILLS ONCE A DAY BY MOUTH
     Route: 048
     Dates: start: 20140206, end: 20140422
  2. ADVAIR [Concomitant]
  3. NASONEX [Concomitant]
  4. SYNTHROID [Concomitant]
  5. PREDNIZONE [Concomitant]
  6. CALCIUM WITH VITAMIN D [Concomitant]
  7. VITAMIN B [Concomitant]
  8. PROBIOTIC [Concomitant]

REACTIONS (1)
  - Rash [None]
